FAERS Safety Report 6636445-9 (Version None)
Quarter: 2010Q1

REPORT INFORMATION
  Report Type: 
  Country: None (occurrence: None)
  Receive Date: 20100316
  Receipt Date: 20100305
  Transmission Date: 20100710
  Serious: Yes (Other)
  Sender: FDA-Public Use
  Company Number: US-BAXTER-2010BH006097

PATIENT
  Age: 47 Year
  Sex: Female
  Weight: 54 kg

DRUGS (6)
  1. GAMMAGARD LIQUID [Suspect]
     Indication: NEUROPATHY PERIPHERAL
     Route: 042
     Dates: start: 20100216, end: 20100220
  2. GAMMAGARD LIQUID [Suspect]
     Indication: OFF LABEL USE
     Route: 042
     Dates: start: 20100216, end: 20100220
  3. GAMMAGARD LIQUID [Suspect]
     Route: 042
     Dates: start: 20100216, end: 20100220
  4. GAMMAGARD LIQUID [Suspect]
     Route: 042
     Dates: start: 20100216, end: 20100220
  5. GAMMAGARD LIQUID [Suspect]
     Route: 042
     Dates: start: 20081001
  6. GAMMAGARD LIQUID [Suspect]
     Route: 042
     Dates: start: 20081001

REACTIONS (1)
  - HAEMOLYSIS [None]
